FAERS Safety Report 6089940-8 (Version None)
Quarter: 2009Q1

REPORT INFORMATION
  Report Type: 
  Country: None (occurrence: None)
  Receive Date: 20090220
  Receipt Date: 20090209
  Transmission Date: 20090719
  Serious: Yes (Hospitalization)
  Sender: FDA-Public Use
  Company Number: 231140K09USA

PATIENT
  Age: 59 Year
  Sex: Female
  Weight: 68 kg

DRUGS (3)
  1. REBIF [Suspect]
     Indication: MULTIPLE SCLEROSIS
     Dosage: 44 MCG, 3 IN 1 WEEKS, SUBCUTANEOUS
     Route: 058
     Dates: start: 20060918
  2. AMANTADINE HCL [Concomitant]
  3. ESTROGEN (ESTROGEN-S [Concomitant]

REACTIONS (4)
  - FALL [None]
  - PELVIC FRACTURE [None]
  - PHOTOPSIA [None]
  - VISUAL IMPAIRMENT [None]
